FAERS Safety Report 17812221 (Version 2)
Quarter: 2021Q4

REPORT INFORMATION
  Report Type: Spontaneous
  Country: US (occurrence: US)
  Receive Date: 20200521
  Receipt Date: 20211020
  Transmission Date: 20220303
  Serious: No
  Sender: FDA-Public Use
  Company Number: US-PFIZER INC-2019057921

PATIENT
  Age: 62 Year
  Sex: Male
  Weight: 91 kg

DRUGS (5)
  1. LYRICA [Suspect]
     Active Substance: PREGABALIN
     Indication: Back pain
     Dosage: 200 MG, TWICE DAILY
     Route: 048
  2. LYRICA [Suspect]
     Active Substance: PREGABALIN
     Indication: Sciatica
  3. LYRICA [Suspect]
     Active Substance: PREGABALIN
     Indication: Tinnitus
  4. LYRICA [Suspect]
     Active Substance: PREGABALIN
     Indication: Intervertebral disc degeneration
  5. LYRICA [Suspect]
     Active Substance: PREGABALIN
     Indication: Post laminectomy syndrome

REACTIONS (1)
  - Memory impairment [Unknown]
